FAERS Safety Report 4911231-6 (Version None)
Quarter: 2006Q1

REPORT INFORMATION
  Report Type: 
  Country: None (occurrence: None)
  Receive Date: 20060209
  Receipt Date: 20060125
  Transmission Date: 20060701
  Serious: Yes (Hospitalization)
  Sender: FDA-Public Use
  Company Number: 2005-02678

PATIENT
  Age: 77 Year
  Sex: Male

DRUGS (3)
  1. VELCADE [Suspect]
     Indication: MULTIPLE MYELOMA
     Dates: start: 20050527, end: 20050530
  2. CEFTAZIDMINE PENTAHYDRATE [Concomitant]
  3. RUBDERIB (BETAMETHASONE) [Concomitant]

REACTIONS (15)
  - ACINETOBACTER INFECTION [None]
  - ANEURYSM [None]
  - DISEASE RECURRENCE [None]
  - HAEMOGLOBIN DECREASED [None]
  - HYPERKALAEMIA [None]
  - KLEBSIELLA INFECTION [None]
  - METABOLIC ACIDOSIS [None]
  - PLATELET COUNT DECREASED [None]
  - PNEUMONIA [None]
  - PYREXIA [None]
  - RECTAL NEOPLASM [None]
  - RED BLOOD CELL COUNT DECREASED [None]
  - TUMOUR HAEMORRHAGE [None]
  - UPPER GASTROINTESTINAL HAEMORRHAGE [None]
  - VENTRICULAR TACHYCARDIA [None]
